FAERS Safety Report 7301247-7 (Version None)
Quarter: 2011Q1

REPORT INFORMATION
  Report Type: 
  Country: None (occurrence: None)
  Receive Date: 20110218
  Receipt Date: 20110215
  Transmission Date: 20110831
  Serious: Yes (Other)
  Sender: FDA-Public Use
  Company Number: US-PFIZER INC-2011035152

PATIENT
  Sex: Female

DRUGS (4)
  1. CARVEDILOL [Concomitant]
     Dosage: UNK
     Route: 048
  2. FOSAMAX [Concomitant]
     Dosage: UNK
     Route: 048
  3. COZAAR [Concomitant]
     Dosage: UNK
     Route: 048
  4. TOVIAZ [Suspect]
     Dosage: 4 MG, UNK
     Route: 048

REACTIONS (4)
  - PALPITATIONS [None]
  - CHEST PAIN [None]
  - VISION BLURRED [None]
  - TACHYCARDIA [None]
